FAERS Safety Report 20609124 (Version 3)
Quarter: 2022Q2

REPORT INFORMATION
  Report Type: Other
  Country: JP (occurrence: JP)
  Receive Date: 20220317
  Receipt Date: 20220627
  Transmission Date: 20220721
  Serious: Yes (Hospitalization, Other)
  Sender: FDA-Public Use
  Company Number: JP-CHUGAI-2022008431

PATIENT
  Age: 8 Decade
  Sex: Female

DRUGS (16)
  1. AVASTIN [Suspect]
     Active Substance: BEVACIZUMAB
     Indication: Colon cancer
     Dosage: 7.5 MILLIGRAM/KILOGRAM, QD
     Route: 041
     Dates: start: 20200403, end: 20200403
  2. AVASTIN [Suspect]
     Active Substance: BEVACIZUMAB
     Dosage: UNK UNK, ONCE/3WEEKS
     Route: 041
     Dates: start: 20200424, end: 20200515
  3. AVASTIN [Suspect]
     Active Substance: BEVACIZUMAB
     Dosage: UNK UNK, ONCE/3WEEKS
     Route: 041
     Dates: start: 20200619, end: 20200731
  4. AVASTIN [Suspect]
     Active Substance: BEVACIZUMAB
     Dosage: UNK UNK, QD
     Route: 041
     Dates: start: 20200828, end: 20200828
  5. XELODA [Suspect]
     Active Substance: CAPECITABINE
     Indication: Colon cancer
     Route: 048
     Dates: start: 20200403
  6. XELODA [Suspect]
     Active Substance: CAPECITABINE
     Route: 048
     Dates: start: 20200424
  7. XELODA [Suspect]
     Active Substance: CAPECITABINE
     Route: 048
     Dates: start: 20200619
  8. XELODA [Suspect]
     Active Substance: CAPECITABINE
     Route: 048
     Dates: start: 20200828
  9. OXALIPLATIN [Concomitant]
     Active Substance: OXALIPLATIN
     Indication: Colon cancer
     Dosage: UNK UNK, QD
     Route: 041
     Dates: start: 20200403, end: 20200403
  10. OXALIPLATIN [Concomitant]
     Active Substance: OXALIPLATIN
     Dosage: UNK UNK, ONCE/3WEEKS
     Route: 041
     Dates: start: 20200424, end: 20200515
  11. OXALIPLATIN [Concomitant]
     Active Substance: OXALIPLATIN
     Dosage: UNK UNK, ONCE/3WEEKS
     Route: 041
     Dates: start: 20200619, end: 20200731
  12. IRINOTECAN HYDROCHLORIDE [Concomitant]
     Active Substance: IRINOTECAN HYDROCHLORIDE
     Indication: Metastases to lung
     Route: 041
  13. FLUOROURACIL [Concomitant]
     Active Substance: FLUOROURACIL
     Indication: Metastases to lung
     Route: 040
  14. FLUOROURACIL [Concomitant]
     Active Substance: FLUOROURACIL
     Dosage: UNK
     Route: 041
  15. LEVOLEUCOVORIN CALCIUM [Concomitant]
     Active Substance: LEVOLEUCOVORIN CALCIUM
     Indication: Metastases to lung
     Route: 041
  16. RAMUCIRUMAB [Concomitant]
     Active Substance: RAMUCIRUMAB
     Indication: Metastases to lung
     Dosage: UNK
     Route: 041

REACTIONS (5)
  - Peritonitis [Recovered/Resolved]
  - Postoperative wound infection [Recovered/Resolved]
  - Anastomotic complication [Recovered/Resolved]
  - Impaired healing [Recovered/Resolved]
  - Pruritus [Unknown]

NARRATIVE: CASE EVENT DATE: 20200605
